FAERS Safety Report 17640591 (Version 1)
Quarter: 2020Q2

REPORT INFORMATION
  Report Type: Spontaneous
  Country: US (occurrence: US)
  Receive Date: 20200408
  Receipt Date: 20200408
  Transmission Date: 20200713
  Serious: Yes (Life-Threatening, Hospitalization, Other)
  Sender: FDA-Public Use
  Company Number: US-MACLEODS PHARMACEUTICALS US LTD-MAC2020026019

PATIENT

DRUGS (4)
  1. THERAPEUTIC PLASMA EXCHANGE WITH 5% ALBUMIN (TPE) [Interacting]
     Active Substance: ALBUMIN HUMAN
     Indication: FLUID REPLACEMENT
     Dosage: UNK, SINGLE VOLUME
     Route: 065
  2. AMLODIPINE [Concomitant]
     Active Substance: AMLODIPINE BESYLATE
     Indication: HYPERTENSION
     Dosage: UNK
     Route: 065
  3. THERAPEUTIC PLASMA EXCHANGE WITH 5% ALBUMIN (TPE) [Interacting]
     Active Substance: ALBUMIN HUMAN
     Indication: NEUROPSYCHIATRIC LUPUS
  4. LOSARTAN 25 MG [Suspect]
     Active Substance: LOSARTAN
     Indication: HYPERTENSION
     Dosage: 25 MILLIGRAM
     Route: 065

REACTIONS (5)
  - Haemodynamic instability [Recovering/Resolving]
  - Hypoxia [Recovering/Resolving]
  - Hypotension [Recovering/Resolving]
  - Hypocalcaemia [Recovering/Resolving]
  - Drug interaction [Recovering/Resolving]
